FAERS Safety Report 17028623 (Version 2)
Quarter: 2019Q4

REPORT INFORMATION
  Report Type: Spontaneous
  Country: PL (occurrence: PL)
  Receive Date: 20191113
  Receipt Date: 20191205
  Transmission Date: 20200122
  Serious: Yes (Other)
  Sender: FDA-Public Use
  Company Number: PL-BAXTER-2019BAX022892

PATIENT
  Age: 55 Year
  Sex: Female
  Weight: 130 kg

DRUGS (7)
  1. DOCETAXEL. [Suspect]
     Active Substance: DOCETAXEL
     Indication: MALIGNANT NEOPLASM OF PLEURA
     Route: 065
  2. CISPLATIN. [Suspect]
     Active Substance: CISPLATIN
     Indication: MALIGNANT NEOPLASM OF PLEURA
     Dosage: 80 MG/M2 AT 21-DAY INTERVALS
     Route: 065
  3. DACARBAZINE. [Suspect]
     Active Substance: DACARBAZINE
     Indication: MALIGNANT NEOPLASM OF PLEURA
     Route: 065
  4. GEMCITABINE. [Suspect]
     Active Substance: GEMCITABINE
     Indication: MALIGNANT NEOPLASM OF PLEURA
     Route: 065
  5. DOXIL [Suspect]
     Active Substance: DOXORUBICIN HYDROCHLORIDE
     Indication: MALIGNANT NEOPLASM OF PLEURA
     Dosage: 40 MG/M2 AT 21-DAY INTERVALS
     Route: 065
  6. CYCLOPHOSPHAMIDE. [Suspect]
     Active Substance: CYCLOPHOSPHAMIDE
     Indication: MALIGNANT NEOPLASM OF PLEURA
     Route: 065
  7. PAZOPANIB [Suspect]
     Active Substance: PAZOPANIB
     Indication: MALIGNANT NEOPLASM OF PLEURA
     Dosage: 800 MG
     Route: 048
     Dates: start: 201611, end: 201711

REACTIONS (5)
  - Malignant neoplasm of pleura [Unknown]
  - Metastases to liver [Unknown]
  - Malignant neoplasm progression [Unknown]
  - Metastases to abdominal cavity [Unknown]
  - Metastases to thorax [Unknown]

NARRATIVE: CASE EVENT DATE: 201711
